FAERS Safety Report 6471854-2 (Version None)
Quarter: 2009Q4

REPORT INFORMATION
  Report Type: 
  Country: None (occurrence: None)
  Receive Date: 20091203
  Receipt Date: 20080506
  Transmission Date: 20100525
  Serious: Yes (Hospitalization)
  Sender: FDA-Public Use
  Company Number: US-ELI_LILLY_AND_COMPANY-US200803006019

PATIENT
  Sex: Female

DRUGS (22)
  1. HUMALOG [Suspect]
     Dates: start: 20070101
  2. HUMULIN N [Suspect]
     Dates: start: 20000101
  3. HUMULIN 70/30 [Suspect]
     Dates: start: 20040101
  4. LANTUS [Concomitant]
     Dosage: 56 U, EACH EVENING
  5. TOPROL-XL [Concomitant]
  6. LASIX [Concomitant]
     Dosage: 40 UNK, UNK
  7. ZOLOFT [Concomitant]
  8. K-DUR [Concomitant]
     Dosage: 20 MEQ, DAILY (1/D)
  9. ZESTRIL [Concomitant]
     Dosage: 5 MG, DAILY (1/D)
  10. ZOCOR [Concomitant]
  11. ASPIRIN [Concomitant]
     Dosage: 162 MG, UNK
  12. ASPIRIN [Concomitant]
     Dosage: 325 MG, UNK
  13. CALTRATE [Concomitant]
  14. CENTRUM SILVER [Concomitant]
  15. SERTRALINE HCL [Concomitant]
     Dosage: 75 MG, DAILY (1/D)
  16. DARVOCET-N 100 [Concomitant]
  17. NITROGLYCERIN [Concomitant]
     Dosage: 0.4 MG, AS NEEDED
     Route: 060
  18. XANAX [Concomitant]
     Dosage: 0.25 MG, 3/D
  19. INSULIN LISPRO [Concomitant]
  20. PEPCID [Concomitant]
     Dosage: 20 MG, 2/D
  21. ZAROXOLYN [Concomitant]
     Dosage: 5 MG, DAILY (1/D)
  22. FEOSOL [Concomitant]
     Dosage: 325 MG, DAILY (1/D)

REACTIONS (3)
  - CORONARY ARTERY DISEASE [None]
  - INJECTION SITE IRRITATION [None]
  - INJECTION SITE PAIN [None]
